FAERS Safety Report 6290674-5 (Version None)
Quarter: 2009Q3

REPORT INFORMATION
  Report Type: 
  Country: None (occurrence: None)
  Receive Date: 20090730
  Receipt Date: 20090721
  Transmission Date: 20100115
  Serious: Yes (Death, Other)
  Sender: FDA-Public Use
  Company Number: PHHY2008JP21206

PATIENT
  Sex: Female

DRUGS (4)
  1. ICL670A ICL+DISTAB [Suspect]
     Indication: MULTIPLE MYELOMA
     Dosage: 1000 MG/DAY
     Route: 048
     Dates: start: 20080630
  2. PLATELETS [Concomitant]
     Dosage: 10 OR 15 UNITS EVERY 3 TO 10 DAYS
     Dates: start: 20080422, end: 20080527
  3. PLATELETS [Concomitant]
     Dosage: 10 OR 15 UNITS EVERY 3 OR 4 DAYS
     Dates: start: 20080530, end: 20080821
  4. RED BLOOD CELLS, LEUCOCYTE DEPLETED [Concomitant]
     Dosage: UNK
     Dates: start: 20080502

REACTIONS (11)
  - ALANINE AMINOTRANSFERASE INCREASED [None]
  - ASPARTATE AMINOTRANSFERASE INCREASED [None]
  - BLOOD ALKALINE PHOSPHATASE INCREASED [None]
  - BLOOD BILIRUBIN INCREASED [None]
  - BLOOD CREATININE INCREASED [None]
  - BLOOD LACTATE DEHYDROGENASE INCREASED [None]
  - BLOOD UREA INCREASED [None]
  - DISEASE PROGRESSION [None]
  - GAMMA-GLUTAMYLTRANSFERASE INCREASED [None]
  - MULTIPLE MYELOMA [None]
  - SERUM FERRITIN INCREASED [None]
